FAERS Safety Report 8671981 (Version 3)
Quarter: 2013Q4

REPORT INFORMATION
  Report Type: Spontaneous
  Country: US (occurrence: US)
  Receive Date: 20120718
  Receipt Date: 20131101
  Transmission Date: 20140711
  Serious: No
  Sender: FDA-Public Use
  Company Number: US-009507513-1207USA002946

PATIENT
  Age: 64 Year
  Sex: Male

DRUGS (9)
  1. VICTRELIS [Suspect]
     Indication: HEPATITIS C
     Dosage: 800 MG, Q8H
     Route: 048
     Dates: start: 201206
  2. PEGINTRON [Suspect]
     Indication: HEPATITIS C
     Dosage: 120 MICROGRAM, QW
     Route: 058
  3. RIBAVIRIN (WARRICK) [Suspect]
  4. PROMACTA [Concomitant]
  5. LACTULOSE [Concomitant]
  6. DIOVAN [Concomitant]
  7. CETIRIZINE HYDROCHLORIDE [Concomitant]
     Dosage: UNK, PRN
  8. ACETAMINOPHEN [Concomitant]
  9. OMEPRAZOLE [Concomitant]

REACTIONS (3)
  - Weight decreased [Not Recovered/Not Resolved]
  - Fatigue [Not Recovered/Not Resolved]
  - Decreased appetite [Not Recovered/Not Resolved]
